FAERS Safety Report 6924933-7 (Version None)
Quarter: 2010Q3

REPORT INFORMATION
  Report Type: 
  Country: None (occurrence: None)
  Receive Date: 20100816
  Receipt Date: 20100808
  Transmission Date: 20110219
  Serious: Yes (Other)
  Sender: FDA-Public Use
  Company Number: IT-JNJFOC-20100802375

PATIENT
  Age: 39 Year
  Sex: Female

DRUGS (2)
  1. HALDOL [Suspect]
     Indication: SELF INJURIOUS BEHAVIOUR
     Dosage: 30 TABLETS OF 5MG HALOPERIDOL
     Route: 048
  2. TIROSINT [Suspect]
     Indication: SELF INJURIOUS BEHAVIOUR
     Dosage: 75 TABLETS OF OF LEVOTHYROXINE SODIUM (100UG)
     Route: 048

REACTIONS (3)
  - MULTIPLE DRUG OVERDOSE INTENTIONAL [None]
  - SELF INJURIOUS BEHAVIOUR [None]
  - SOPOR [None]
